FAERS Safety Report 5933038-3 (Version None)
Quarter: 2008Q4

REPORT INFORMATION
  Report Type: 
  Country: None (occurrence: None)
  Receive Date: 20081023
  Receipt Date: 20081015
  Transmission Date: 20090506
  Serious: Yes (Hospitalization)
  Sender: FDA-Public Use
  Company Number: 2008BI025018

PATIENT
  Age: 41 Year
  Sex: Female

DRUGS (14)
  1. TYSABRI [Suspect]
     Indication: MULTIPLE SCLEROSIS
     Dosage: 300 MG; QM; IV
     Route: 042
     Dates: start: 20080122, end: 20080911
  2. BACLOFEN [Concomitant]
  3. COLACE [Concomitant]
  4. LEXAPRO [Concomitant]
  5. OPANA ER [Concomitant]
  6. AMBIEN [Concomitant]
  7. VALIUM [Concomitant]
  8. COLON HERBAL CLEANSER [Concomitant]
  9. LORTAB [Concomitant]
  10. DILAUDID [Concomitant]
  11. MOTRIN [Concomitant]
  12. PREDNISONE TAB [Concomitant]
  13. COPAXONE [Concomitant]
  14. CELLCEPT [Concomitant]

REACTIONS (14)
  - CONDITION AGGRAVATED [None]
  - DEPRESSION [None]
  - DRUG DOSE OMISSION [None]
  - FIBROMYALGIA [None]
  - GENITAL HERPES [None]
  - HERPES SIMPLEX [None]
  - HYPOAESTHESIA FACIAL [None]
  - MUMPS [None]
  - OPPORTUNISTIC INFECTION [None]
  - PAIN [None]
  - PAROTITIS [None]
  - SACROILIITIS [None]
  - SALIVARY GLAND CALCULUS [None]
  - THROMBOCYTOPENIA [None]
